FAERS Safety Report 12468860 (Version 1)
Quarter: 2016Q2

REPORT INFORMATION
  Report Type: Other
  Country: NL (occurrence: NL)
  Receive Date: 20160615
  Receipt Date: 20160615
  Transmission Date: 20160815
  Serious: Yes (Disabling)
  Sender: FDA-Public Use
  Company Number: NL-MYLANLABS-2016M1024023

PATIENT

DRUGS (5)
  1. CIPRAMIL                           /00582602/ [Suspect]
     Active Substance: CITALOPRAM HYDROBROMIDE
     Indication: BORDERLINE PERSONALITY DISORDER
     Dosage: UNK (1 KEER PER DAG 1 STUK(S))
     Route: 048
     Dates: start: 2002, end: 2009
  2. OMEPRAZOL                          /00661201/ [Concomitant]
     Active Substance: OMEPRAZOLE
     Indication: PROPHYLAXIS AGAINST GASTROINTESTINAL ULCER
     Dosage: EXTRA INFO: ALLEEN ALS IK BV ANTIBIOTICA KRIJG
     Route: 048
     Dates: start: 2010
  3. ESCITALOPRAM [Suspect]
     Active Substance: ESCITALOPRAM OXALATE
     Indication: BORDERLINE PERSONALITY DISORDER
     Dosage: 10 MG, QD (1 KEER PER DAG 1 STUK(S))
     Route: 048
     Dates: start: 2009
  4. RESURE [Concomitant]
     Dosage: UNK
  5. ASCORBINEZUUR [Concomitant]
     Dosage: EXTRA INFO: AF EN TOE BIJ (HOOFD)PIJN
     Route: 048
     Dates: start: 1998, end: 2016

REACTIONS (3)
  - Hypersensitivity [Not Recovered/Not Resolved]
  - Therapeutic response unexpected [Not Recovered/Not Resolved]
  - Tooth disorder [Not Recovered/Not Resolved]

NARRATIVE: CASE EVENT DATE: 2014
